FAERS Safety Report 11681532 (Version 1)
Quarter: 2015Q4

REPORT INFORMATION
  Report Type: Spontaneous
  Country: US (occurrence: None)
  Receive Date: 20151028
  Receipt Date: 20151028
  Transmission Date: 20160304
  Serious: No
  Sender: FDA-Public Use
  Company Number: None

PATIENT
  Age: 50 Year
  Sex: Female
  Weight: 68.04 kg

DRUGS (1)
  1. GENERIC FOR VALIUM THREW BOTTLE AWAY [Suspect]
     Active Substance: DIAZEPAM
     Indication: NUCLEAR MAGNETIC RESONANCE IMAGING
     Dosage: 10 MG ?2 PILLA ?1/2 HR BEFORE MRI?MOUTH
     Route: 048
     Dates: start: 201510, end: 201510

REACTIONS (1)
  - Drug ineffective [None]

NARRATIVE: CASE EVENT DATE: 201510
